FAERS Safety Report 9914960 (Version 2)
Quarter: 2016Q2

REPORT INFORMATION
  Report Type: Spontaneous
  Country: RO (occurrence: RO)
  Receive Date: 20140220
  Receipt Date: 20160422
  Transmission Date: 20160815
  Serious: Yes (Life-Threatening)
  Sender: FDA-Public Use
  Company Number: PHHY2014RO017366

PATIENT
  Age: 67 Year
  Sex: Male

DRUGS (3)
  1. CALCIUM FOLINATE [Concomitant]
     Active Substance: LEUCOVORIN CALCIUM
     Indication: CHEMOTHERAPY
     Dosage: 400 MG, UNK
     Route: 042
     Dates: start: 20140123
  2. 5 FLUORO URACIL [Concomitant]
     Active Substance: FLUOROURACIL
     Indication: CHEMOTHERAPY
     Dosage: 1750 MG, UNK
     Route: 042
     Dates: start: 20140123, end: 20140124
  3. OXALIPLATINO EBEWE [Suspect]
     Active Substance: OXALIPLATIN
     Indication: CHEMOTHERAPY
     Dosage: 150 MG, UNK
     Route: 042
     Dates: start: 20140123, end: 20140123

REACTIONS (2)
  - Chills [Recovered/Resolved]
  - Respiratory failure [Recovered/Resolved]

NARRATIVE: CASE EVENT DATE: 20140123
